FAERS Safety Report 7922455 (Version 2)
Quarter: 2013Q3

REPORT INFORMATION
  Report Type: Spontaneous
  Country: US (occurrence: US)
  Receive Date: 20110429
  Receipt Date: 20130829
  Transmission Date: 20140515
  Serious: No
  Sender: FDA-Public Use
  Company Number: US-ASTRAZENECA-2011SE03502

PATIENT
  Age: 79 Year
  Sex: Male
  Weight: 93 kg

DRUGS (3)
  1. NEXIUM [Suspect]
     Indication: DYSPHONIA
     Route: 048
     Dates: start: 2008
  2. NEXIUM [Suspect]
     Indication: DYSPEPSIA
     Route: 048
     Dates: start: 2008
  3. BENZEPRIL [Concomitant]
     Indication: HYPERTENSION

REACTIONS (6)
  - Gastrooesophageal reflux disease [Unknown]
  - Gastrooesophageal reflux disease [Unknown]
  - Productive cough [Unknown]
  - Diarrhoea [Unknown]
  - Drug ineffective [Unknown]
  - Intentional drug misuse [Unknown]
